FAERS Safety Report 13523595 (Version 2)
Quarter: 2017Q3

REPORT INFORMATION
  Report Type: Spontaneous
  Country: US (occurrence: US)
  Receive Date: 20170508
  Receipt Date: 20170810
  Transmission Date: 20171127
  Serious: No
  Sender: FDA-Public Use
  Company Number: US-VIFOR (INTERNATIONAL) INC.-VIT-2017-02349

PATIENT
  Sex: Female

DRUGS (17)
  1. VITAMIN B COMPLEX [Concomitant]
     Active Substance: CYANOCOBALAMIN\DEXPANTHENOL\NIACINAMIDE\PYRIDOXINE HYDROCHLORIDE\RIBOFLAVIN 5^-PHOSPHATE SODIUM\THIAMINE HYDROCHLORIDE\VITAMIN B COMPLEX
  2. GUANFACINE. [Concomitant]
     Active Substance: GUANFACINE
  3. ISOSORBIDE. [Concomitant]
     Active Substance: ISOSORBIDE
  4. FISH OIL [Concomitant]
     Active Substance: FISH OIL
  5. PROBIOTIC [Concomitant]
     Active Substance: PROBIOTICS NOS
  6. AMLODIPINE [Concomitant]
     Active Substance: AMLODIPINE BESYLATE
  7. COENZYME Q10 [Concomitant]
     Active Substance: UBIDECARENONE
  8. ACETYLSALICYLIC ACID [Concomitant]
     Active Substance: ASPIRIN
  9. VITAMIN D3 [Concomitant]
     Active Substance: CHOLECALCIFEROL
  10. GLIPIZIDE. [Concomitant]
     Active Substance: GLIPIZIDE
  11. VELTASSA [Suspect]
     Active Substance: PATIROMER
     Indication: HYPERKALAEMIA
     Route: 048
     Dates: start: 201701
  12. BIOTIN [Concomitant]
     Active Substance: BIOTIN
  13. HYDRALAZINE [Concomitant]
     Active Substance: HYDRALAZINE HYDROCHLORIDE
  14. STOOL SOFTNER [Concomitant]
  15. RANITIDINE. [Concomitant]
     Active Substance: RANITIDINE
  16. VITAMIN C [Concomitant]
     Active Substance: ASCORBIC ACID
  17. EPOGEN [Concomitant]
     Active Substance: ERYTHROPOIETIN

REACTIONS (8)
  - Blood pressure increased [Unknown]
  - Abdominal discomfort [Unknown]
  - Flatulence [Unknown]
  - Arthralgia [Unknown]
  - Dry mouth [Unknown]
  - Blood glucose increased [Unknown]
  - Pruritus [Unknown]
  - Arthritis [Unknown]

NARRATIVE: CASE EVENT DATE: 2017
